FAERS Safety Report 19047448 (Version 1)
Quarter: 2021Q1

REPORT INFORMATION
  Report Type: Report from Study
  Country: US (occurrence: US)
  Receive Date: 20210323
  Receipt Date: 20210323
  Transmission Date: 20210420
  Serious: Yes (Death, Hospitalization)
  Sender: FDA-Public Use
  Company Number: US-TEVA-2021-US-1891414

PATIENT
  Age: 56 Year
  Sex: Female
  Weight: 73.8 kg

DRUGS (30)
  1. IRINOTECAN HCL [Suspect]
     Active Substance: IRINOTECAN HYDROCHLORIDE
     Indication: COLORECTAL CANCER METASTATIC
     Route: 042
     Dates: start: 20171201, end: 20171228
  2. FOLINIC ACID [Suspect]
     Active Substance: LEUCOVORIN
     Indication: COLORECTAL CANCER METASTATIC
     Route: 042
     Dates: start: 20171201, end: 20180111
  3. ASPIRIN [ACETYLSALICYLIC ACID] [Concomitant]
     Active Substance: ASPIRIN
     Dates: start: 20150213
  4. COLACE [Concomitant]
     Active Substance: DOCUSATE SODIUM
     Dates: start: 20150317
  5. TURMERIC [CURCUMA LONGA] [Concomitant]
     Active Substance: HERBALS\TURMERIC
     Dates: start: 20170223
  6. PROTONIX [OMEPRAZOLE] [Concomitant]
     Active Substance: OMEPRAZOLE
     Dates: start: 2018
  7. VITAMIN C [Concomitant]
     Active Substance: ASCORBIC ACID
     Dates: start: 20170718
  8. XYZAL [Concomitant]
     Active Substance: LEVOCETIRIZINE DIHYDROCHLORIDE
     Dates: start: 20180111
  9. ONDANSETRON [Concomitant]
     Active Substance: ONDANSETRON
     Dates: start: 20170421
  10. CETUXIMAB. [Suspect]
     Active Substance: CETUXIMAB
     Dosage: WEEKLY
     Route: 042
     Dates: start: 20171228, end: 20180104
  11. ATIVAN [Concomitant]
     Active Substance: LORAZEPAM
     Dates: start: 2018
  12. ZYRTEC [Concomitant]
     Active Substance: CETIRIZINE HYDROCHLORIDE
     Dates: start: 20170531
  13. VITAMIN D3 [Concomitant]
     Active Substance: CHOLECALCIFEROL
     Dates: start: 20170516
  14. TAGAMET [Concomitant]
     Active Substance: CIMETIDINE
     Dates: start: 2018
  15. DIPHENHYDRAMINE W/LIDOCAINE/NYSTATIN [Concomitant]
  16. 5?FLUOROURACIL [Suspect]
     Active Substance: FLUOROURACIL
     Indication: COLORECTAL CANCER METASTATIC
     Route: 042
     Dates: start: 20171201, end: 20180111
  17. VALTREX [Concomitant]
     Active Substance: VALACYCLOVIR HYDROCHLORIDE
     Dates: start: 20170516
  18. CALCIUM 500+D [Concomitant]
     Active Substance: CALCIUM\VITAMIN D
     Dates: start: 20170718
  19. MILK THISTLE [SILYBUM MARIANUM] [Concomitant]
     Active Substance: DIETARY SUPPLEMENT\HERBALS\MILK THISTLE
     Dates: start: 20170516
  20. HYDROCORTISONE;LIDOCAINE [Concomitant]
     Dates: start: 2018
  21. GARLIC [ALLIUM SATIVUM] [Concomitant]
     Active Substance: GARLIC
     Dates: start: 2018
  22. CETUXIMAB. [Suspect]
     Active Substance: CETUXIMAB
     Indication: COLORECTAL CANCER METASTATIC
     Dosage: FREQUENCY: WEEKLY
     Route: 042
     Dates: start: 20171214
  23. DOXYCYCLINE. [Concomitant]
     Active Substance: DOXYCYCLINE
     Dates: start: 201412
  24. MELATONIN [Concomitant]
     Active Substance: MELATONIN
     Dates: start: 20170223
  25. ALBUTEROL [SALBUTAMOL] [Concomitant]
     Active Substance: ALBUTEROL
  26. PREDNISONE. [Concomitant]
     Active Substance: PREDNISONE
  27. CETUXIMAB. [Suspect]
     Active Substance: CETUXIMAB
     Dosage: WEEKLY
     Route: 042
     Dates: start: 20180118, end: 20180118
  28. FLUTICASONE. [Concomitant]
     Active Substance: FLUTICASONE
     Dates: start: 20180105
  29. COMPAZINE [PROCHLORPERAZINE EDISYLATE] [Concomitant]
     Active Substance: PROCHLORPERAZINE EDISYLATE
     Dates: start: 20171012
  30. COENZYME Q10 [Concomitant]
     Active Substance: DIETARY SUPPLEMENT\UBIDECARENONE
     Dates: start: 20170718

REACTIONS (3)
  - Respiratory failure [Fatal]
  - Interstitial lung disease [Not Recovered/Not Resolved]
  - Pneumomediastinum [Not Recovered/Not Resolved]

NARRATIVE: CASE EVENT DATE: 20180123
